FAERS Safety Report 12508871 (Version 1)
Quarter: 2016Q2

REPORT INFORMATION
  Report Type: Spontaneous
  Country: US (occurrence: US)
  Receive Date: 20160629
  Receipt Date: 20160629
  Transmission Date: 20160815
  Serious: No
  Sender: FDA-Public Use
  Company Number: US-WATSON-2016-06018

PATIENT
  Sex: Male

DRUGS (1)
  1. TESTOSTERONE CYPIONATE (UNKNOWN) [Suspect]
     Active Substance: TESTOSTERONE CYPIONATE
     Indication: PRODUCT USED FOR UNKNOWN INDICATION
     Dosage: UNK, 2X/MONTH
     Route: 065
     Dates: start: 2001

REACTIONS (1)
  - Skin burning sensation [Not Recovered/Not Resolved]
